FAERS Safety Report 9319246 (Version 2)
Quarter: 2013Q3

REPORT INFORMATION
  Report Type: Spontaneous
  Country: NL (occurrence: NL)
  Receive Date: 20130530
  Receipt Date: 20130722
  Transmission Date: 20140515
  Serious: Yes (Hospitalization)
  Sender: FDA-Public Use
  Company Number: NL-ASTRAZENECA-2013SE34561

PATIENT
  Age: 16050 Day
  Sex: Male
  Weight: 79 kg

DRUGS (5)
  1. ENTOCORT [Suspect]
     Indication: CROHN^S DISEASE
     Route: 048
     Dates: start: 20121217
  2. ENTOCORT [Suspect]
     Indication: CROHN^S DISEASE
     Route: 048
  3. IMURAN [Concomitant]
     Indication: CROHN^S DISEASE
  4. FORLAX [Concomitant]
     Indication: CONSTIPATION
  5. MAGNESIUM HYDROXIDE [Concomitant]
     Indication: CONSTIPATION
     Route: 048
     Dates: start: 20130318

REACTIONS (2)
  - Diabetes mellitus [Not Recovered/Not Resolved]
  - Dehydration [Unknown]
